FAERS Safety Report 6655900-9 (Version None)
Quarter: 2010Q1

REPORT INFORMATION
  Report Type: 
  Country: None (occurrence: None)
  Receive Date: 20100317
  Receipt Date: 20091218
  Transmission Date: 20100710
  Serious: No
  Sender: FDA-Public Use
  Company Number: DSA_42230_2009

PATIENT
  Sex: Female

DRUGS (2)
  1. XENAZINE [Suspect]
     Indication: ATHETOSIS
     Dosage: (TITRATING DOSE TO REACH 12.5 MG BID ORAL)
     Route: 048
     Dates: start: 20091207
  2. XENAZINE [Suspect]
     Indication: CHOREA
     Dosage: (TITRATING DOSE TO REACH 12.5 MG BID ORAL)
     Route: 048
     Dates: start: 20091207

REACTIONS (1)
  - ADVERSE DRUG REACTION [None]
